FAERS Safety Report 16038875 (Version 3)
Quarter: 2019Q2

REPORT INFORMATION
  Report Type: Report from Study
  Country: DE (occurrence: DE)
  Receive Date: 20190306
  Receipt Date: 20190530
  Transmission Date: 20190711
  Serious: Yes (Hospitalization)
  Sender: FDA-Public Use
  Company Number: PHHY2018DE192499

PATIENT
  Age: 44 Year
  Sex: Female
  Weight: 57 kg

DRUGS (4)
  1. KETOPROFEN. [Concomitant]
     Active Substance: KETOPROFEN
     Indication: ANKYLOSING SPONDYLITIS
     Dosage: UNK
     Route: 048
     Dates: start: 20170405
  2. ERELZI [Suspect]
     Active Substance: ETANERCEPT-SZZS
     Indication: ANKYLOSING SPONDYLITIS
     Dosage: 50 MG, QW
     Route: 058
     Dates: start: 20170928, end: 20180816
  3. BENEPALI [Suspect]
     Active Substance: ETANERCEPT
     Indication: ANKYLOSING SPONDYLITIS
     Dosage: UNK
     Route: 058
     Dates: start: 20180823, end: 20181115
  4. LEVOTHYROXIN [Concomitant]
     Active Substance: LEVOTHYROXINE
     Indication: AUTOIMMUNE THYROIDITIS
     Dosage: UNK
     Route: 048
     Dates: start: 20171018

REACTIONS (3)
  - Abdominal pain upper [Not Recovered/Not Resolved]
  - Skin reaction [Recovered/Resolved]
  - Skin reaction [Recovered/Resolved]

NARRATIVE: CASE EVENT DATE: 20180712
